FAERS Safety Report 13421705 (Version 3)
Quarter: 2017Q2

REPORT INFORMATION
  Report Type: Spontaneous
  Country: JP (occurrence: JP)
  Receive Date: 20170410
  Receipt Date: 20170606
  Transmission Date: 20170830
  Serious: Yes (Hospitalization)
  Sender: FDA-Public Use
  Company Number: JP-JNJFOC-20170406812

PATIENT
  Age: 77 Year
  Sex: Female
  Weight: 51 kg

DRUGS (7)
  1. KOLBET [Concomitant]
     Active Substance: IGURATIMOD
     Route: 048
     Dates: start: 20150904
  2. TAKEPRON [Concomitant]
     Active Substance: LANSOPRAZOLE
     Route: 048
     Dates: start: 20161012
  3. OPALMON [Concomitant]
     Active Substance: LIMAPROST
     Route: 048
     Dates: start: 20160525
  4. SIMPONI [Suspect]
     Active Substance: GOLIMUMAB
     Indication: RHEUMATOID ARTHRITIS
     Route: 058
     Dates: start: 20160330, end: 20170303
  5. ROSUVASTATIN CALCIUM. [Concomitant]
     Active Substance: ROSUVASTATIN CALCIUM
     Route: 048
  6. RIMATIL [Concomitant]
     Active Substance: BUCILLAMINE
     Route: 048
     Dates: start: 20140829
  7. BREDININ [Concomitant]
     Active Substance: MIZORIBINE
     Route: 048
     Dates: start: 20140801

REACTIONS (1)
  - Breast cancer [Unknown]

NARRATIVE: CASE EVENT DATE: 20170303
